FAERS Safety Report 22211312 (Version 1)
Quarter: 2023Q2

REPORT INFORMATION
  Report Type: Spontaneous
  Country: US (occurrence: US)
  Receive Date: 20230414
  Receipt Date: 20230414
  Transmission Date: 20230721
  Serious: Yes (Hospitalization)
  Sender: FDA-Public Use
  Company Number: US-SA-SAC20230413000625

PATIENT
  Age: 25 Year
  Sex: Male

DRUGS (13)
  1. ELOCTATE [Suspect]
     Active Substance: EFMOROCTOCOG ALFA
     Indication: Factor VIII deficiency
     Dosage: 750 IU, Q4D
     Route: 042
     Dates: start: 201207
  2. ELOCTATE [Suspect]
     Active Substance: EFMOROCTOCOG ALFA
     Indication: Factor VIII deficiency
     Dosage: 750 IU, Q4D
     Route: 042
     Dates: start: 201207
  3. ELOCTATE [Suspect]
     Active Substance: EFMOROCTOCOG ALFA
     Dosage: 1500 IU, Q4D
     Route: 042
  4. ELOCTATE [Suspect]
     Active Substance: EFMOROCTOCOG ALFA
     Dosage: 1500 IU, Q4D
     Route: 042
  5. ELOCTATE [Suspect]
     Active Substance: EFMOROCTOCOG ALFA
     Dosage: 2000 IU, Q4D
     Route: 042
     Dates: start: 201207
  6. ELOCTATE [Suspect]
     Active Substance: EFMOROCTOCOG ALFA
     Dosage: 2000 IU, Q4D
     Route: 042
     Dates: start: 201207
  7. ELOCTATE [Suspect]
     Active Substance: EFMOROCTOCOG ALFA
     Dosage: 3000 UNITS (2700-3300), Q4D FOR MAJOR BLEEDS
     Route: 042
  8. ELOCTATE [Suspect]
     Active Substance: EFMOROCTOCOG ALFA
     Dosage: 3000 UNITS (2700-3300), Q4D FOR MAJOR BLEEDS
     Route: 042
  9. ELOCTATE [Suspect]
     Active Substance: EFMOROCTOCOG ALFA
     Dosage: 3000 UNITS (2700-3300), 1X FOR MAJOR BLEEDS
     Route: 042
  10. ELOCTATE [Suspect]
     Active Substance: EFMOROCTOCOG ALFA
     Dosage: 3000 UNITS (2700-3300), 1X FOR MAJOR BLEEDS
     Route: 042
  11. ELOCTATE [Suspect]
     Active Substance: EFMOROCTOCOG ALFA
     Dosage: 1500 UNITS (1350-1650), EVERY 24 TO 48 HOURS, PRN FOR MINOR BLEEDING
     Route: 042
  12. ELOCTATE [Suspect]
     Active Substance: EFMOROCTOCOG ALFA
     Dosage: 1500 UNITS (1350-1650), EVERY 24 TO 48 HOURS, PRN FOR MINOR BLEEDING
     Route: 042
  13. HEMCIBRA [Concomitant]
     Dosage: 162MG (1.08 ML), QW
     Route: 058

REACTIONS (1)
  - Catheter site infection [Unknown]
